FAERS Safety Report 4523892-4 (Version None)
Quarter: 2004Q4

REPORT INFORMATION
  Report Type: 
  Country: None (occurrence: None)
  Receive Date: 20041209
  Receipt Date: 20041209
  Transmission Date: 20050328
  Serious: Yes (Hospitalization)
  Sender: FDA-Public Use
  Company Number: None

PATIENT
  Age: 20 Year
  Sex: Male

DRUGS (1)
  1. ENOXAPARIN  30MG [Suspect]
     Indication: DEEP VENOUS THROMBOSIS PROPHYLAXIS
     Dosage: 30MG  BID SUBCUTANEOUS
     Route: 058
     Dates: start: 20040529, end: 20040606

REACTIONS (4)
  - ANTIBODY TEST POSITIVE [None]
  - INJECTION SITE DESQUAMATION [None]
  - INJECTION SITE NECROSIS [None]
  - INJECTION SITE PIGMENTATION CHANGES [None]
